FAERS Safety Report 6557689-0 (Version None)
Quarter: 2010Q1

REPORT INFORMATION
  Report Type: 
  Country: None (occurrence: None)
  Receive Date: 20100128
  Receipt Date: 20100128
  Transmission Date: 20100710
  Serious: Yes (Other)
  Sender: FDA-Public Use
  Company Number: None

PATIENT
  Sex: Female

DRUGS (1)
  1. LAMOTRIGINE [Suspect]
     Dosage: 500MG DAILY PO
     Route: 048

REACTIONS (3)
  - BREAKTHROUGH PAIN [None]
  - COGNITIVE DISORDER [None]
  - PRODUCT SUBSTITUTION ISSUE [None]
